FAERS Safety Report 8879124 (Version 1)
Quarter: 2012Q4

REPORT INFORMATION
  Report Type: Spontaneous
  Country: US (occurrence: None)
  Receive Date: 20121031
  Receipt Date: 20121031
  Transmission Date: 20130627
  Serious: No
  Sender: FDA-Public Use
  Company Number: None

PATIENT
  Age: 53 Year
  Sex: Female
  Weight: 64.6 kg

DRUGS (1)
  1. NITROFURANTOIN [Suspect]
     Indication: UTI
     Dosage: MG BID PO
     Route: 048
     Dates: start: 20121001, end: 20121001

REACTIONS (5)
  - Dizziness [None]
  - Headache [None]
  - Nausea [None]
  - Vomiting [None]
  - Dyspnoea [None]
